FAERS Safety Report 4480901-9 (Version None)
Quarter: 2004Q3

REPORT INFORMATION
  Report Type: 
  Country: None (occurrence: None)
  Receive Date: 20040923
  Receipt Date: 20040524
  Transmission Date: 20050211
  Serious: No
  Sender: FDA-Public Use
  Company Number: USA040568454

PATIENT
  Age: 69 Year
  Sex: Female

DRUGS (6)
  1. FORTEO [Suspect]
     Indication: OSTEOPOROSIS
     Dates: start: 20040201
  2. CALTRATE (CALCIUM CARBONATE) [Concomitant]
  3. CENTRUM [Concomitant]
  4. VIOXX [Concomitant]
  5. EASPIRIN (ACETYLSALICYLIC ACID) [Concomitant]
  6. TYLENOL PM [Concomitant]

REACTIONS (1)
  - AGEUSIA [None]
